FAERS Safety Report 9702283 (Version 2)
Quarter: 2014Q1

REPORT INFORMATION
  Report Type: Spontaneous
  Country: FR (occurrence: FR)
  Receive Date: 20131121
  Receipt Date: 20140331
  Transmission Date: 20141002
  Serious: Yes (Hospitalization)
  Sender: FDA-Public Use
  Company Number: PHHY2013FR130591

PATIENT
  Age: 52 Year
  Sex: Female

DRUGS (16)
  1. LAMISIL [Suspect]
     Dosage: 1 DF, QD
     Route: 048
     Dates: start: 201309, end: 20131016
  2. IBUPROFEN SANDOZ [Suspect]
     Dosage: UNK UKN, UNK
     Route: 048
     Dates: start: 20131001, end: 20131002
  3. OMEPRAZOLE [Suspect]
     Dosage: UNK UKN, UNK
     Route: 048
     Dates: start: 20131001, end: 20131016
  4. ZOPHREN [Suspect]
     Dosage: UNK UKN, UNK
     Route: 048
     Dates: start: 20130930, end: 201310
  5. TRAMADOL [Suspect]
     Dosage: UNK UKN, UNK
     Route: 048
     Dates: start: 20130930, end: 201310
  6. PYOSTACINE [Suspect]
     Dosage: UNK UKN, UNK
     Route: 048
     Dates: start: 20131004, end: 20131007
  7. CYMBALTA [Concomitant]
  8. TOPALGIC [Concomitant]
  9. PRINCI B [Concomitant]
  10. MOTILIUM [Concomitant]
  11. ISOPTINE [Concomitant]
  12. FORLAX [Concomitant]
  13. TRIATEC [Concomitant]
  14. ESIDREX [Concomitant]
  15. KARDEGIC [Concomitant]
  16. SIMVASTATIN [Concomitant]

REACTIONS (7)
  - Toxic skin eruption [Recovered/Resolved]
  - Rash erythematous [Unknown]
  - Rash maculo-papular [Unknown]
  - Pruritus [Unknown]
  - Skin lesion [Unknown]
  - Cheilitis [Unknown]
  - Skin test positive [Unknown]
